FAERS Safety Report 11076571 (Version 3)
Quarter: 2015Q2

REPORT INFORMATION
  Report Type: Spontaneous
  Country: US (occurrence: US)
  Receive Date: 20150429
  Receipt Date: 20150519
  Transmission Date: 20150821
  Serious: No
  Sender: FDA-Public Use
  Company Number: US-PFIZER INC-2015143681

PATIENT
  Age: 7 Year
  Sex: Male
  Weight: 32 kg

DRUGS (3)
  1. QUILLIVANT XR [Suspect]
     Active Substance: METHYLPHENIDATE HYDROCHLORIDE
     Indication: DISTURBANCE IN ATTENTION
  2. QUILLIVANT XR [Suspect]
     Active Substance: METHYLPHENIDATE HYDROCHLORIDE
     Indication: PSYCHOMOTOR HYPERACTIVITY
     Dosage: 5 ML, 1X/DAY, (IN MORNING)
     Dates: end: 20150418
  3. AMANTADINE [Concomitant]
     Active Substance: AMANTADINE
     Dosage: 5 ML, AS NEEDED, (BETWEEN ONCE AND TWICE A DAY )

REACTIONS (3)
  - Psychomotor hyperactivity [Unknown]
  - Disturbance in attention [Unknown]
  - Condition aggravated [Unknown]

NARRATIVE: CASE EVENT DATE: 201504
